FAERS Safety Report 13150421 (Version 2)
Quarter: 2017Q2

REPORT INFORMATION
  Report Type: Report from Study
  Country: US (occurrence: US)
  Receive Date: 20170125
  Receipt Date: 20170413
  Transmission Date: 20170830
  Serious: No
  Sender: FDA-Public Use
  Company Number: US-PFIZER INC-2017030203

PATIENT
  Age: 56 Year
  Sex: Male
  Weight: 107 kg

DRUGS (11)
  1. SPIRONOLACTONE. [Concomitant]
     Active Substance: SPIRONOLACTONE
     Dosage: UNK
  2. GABAPENTIN. [Concomitant]
     Active Substance: GABAPENTIN
     Dosage: UNK
  3. DIPHENOXYLATE-ATROPINE [Concomitant]
     Dosage: UNK
  4. COREG [Concomitant]
     Active Substance: CARVEDILOL
     Dosage: UNK
  5. BOSULIF [Suspect]
     Active Substance: BOSUTINIB MONOHYDRATE
     Indication: CHRONIC MYELOID LEUKAEMIA
     Dosage: 200 MG, 1X/DAY
     Route: 048
     Dates: start: 20170118
  6. SEROQUEL [Concomitant]
     Active Substance: QUETIAPINE FUMARATE
     Dosage: UNK
  7. ZANTAC [Concomitant]
     Active Substance: RANITIDINE HYDROCHLORIDE
     Dosage: UNK
  8. LISINOPRIL. [Concomitant]
     Active Substance: LISINOPRIL
     Dosage: UNK
  9. ASPIRIN. [Concomitant]
     Active Substance: ASPIRIN
     Dosage: UNK
  10. PERCOCET [Concomitant]
     Active Substance: ACETAMINOPHEN\OXYCODONE HYDROCHLORIDE
     Dosage: UNK
  11. LASIX [Concomitant]
     Active Substance: FUROSEMIDE
     Dosage: UNK

REACTIONS (5)
  - Fatigue [Unknown]
  - Somnolence [Unknown]
  - Nausea [Unknown]
  - Joint stiffness [Unknown]
  - Headache [Unknown]
